FAERS Safety Report 13545441 (Version 1)
Quarter: 2017Q2

REPORT INFORMATION
  Report Type: Spontaneous
  Country: US (occurrence: US)
  Receive Date: 20170513
  Receipt Date: 20170513
  Transmission Date: 20170830
  Serious: Yes (Hospitalization)
  Sender: FDA-Public Use
  Company Number: None

PATIENT
  Age: 34 Year
  Sex: Male
  Weight: 99 kg

DRUGS (1)
  1. TOBRAMYCIN DEXAMETHASONE [Suspect]
     Active Substance: DEXAMETHASONE\TOBRAMYCIN
     Indication: EYE INFECTION
     Dosage: ?          QUANTITY:2 DROP(S); 4 TIMES A DAY OPHTHALMIC?
     Route: 047
     Dates: start: 20170505, end: 20170507

REACTIONS (2)
  - Swelling face [None]
  - Skin disorder [None]

NARRATIVE: CASE EVENT DATE: 20170510
